FAERS Safety Report 5270894-9 (Version None)
Quarter: 2007Q1

REPORT INFORMATION
  Report Type: 
  Country: None (occurrence: None)
  Receive Date: 20070315
  Receipt Date: 20070301
  Transmission Date: 20070707
  Serious: Yes (Death)
  Sender: FDA-Public Use
  Company Number: 070308-0000256

PATIENT

DRUGS (5)
  1. ELSPAR [Suspect]
     Indication: ACUTE LYMPHOCYTIC LEUKAEMIA
     Dosage: 10000 IU/M**2; ; IV
     Route: 042
  2. CYCLOPHOSPHAMIDE [Suspect]
     Indication: ACUTE LYMPHOCYTIC LEUKAEMIA
     Dosage: 1000 MG/M**2; ; IV
     Route: 042
  3. VINCRISTINE [Concomitant]
  4. DAUNORUBICIN HCL [Concomitant]
  5. PREDNISONE [Concomitant]

REACTIONS (1)
  - DRUG TOXICITY [None]
